FAERS Safety Report 16366864 (Version 6)
Quarter: 2019Q4

REPORT INFORMATION
  Report Type: Spontaneous
  Country: US (occurrence: US)
  Receive Date: 20190529
  Receipt Date: 20191014
  Transmission Date: 20200122
  Serious: Yes (Hospitalization, Other)
  Sender: FDA-Public Use
  Company Number: US-SA-2019SA141432

PATIENT
  Age: 72 Year
  Sex: Female

DRUGS (1)
  1. KEVZARA [Suspect]
     Active Substance: SARILUMAB
     Indication: RHEUMATOID ARTHRITIS
     Dosage: 200 MG, QOW
     Route: 058
     Dates: start: 201904, end: 201906

REACTIONS (10)
  - Hepatitis C [Unknown]
  - Urinary tract infection [Unknown]
  - Hypotension [Unknown]
  - Toe amputation [Unknown]
  - Oropharyngeal pain [Unknown]
  - Rash [Unknown]
  - Hepatitis B [Unknown]
  - Oxygen saturation decreased [Unknown]
  - Cardiac disorder [Unknown]
  - Abdominal pain upper [Unknown]

NARRATIVE: CASE EVENT DATE: 2019
